FAERS Safety Report 7683096-3 (Version None)
Quarter: 2011Q3

REPORT INFORMATION
  Report Type: 
  Country: None (occurrence: None)
  Receive Date: 20110815
  Receipt Date: 20110802
  Transmission Date: 20111222
  Serious: Yes (Other)
  Sender: FDA-Public Use
  Company Number: IT-ELI_LILLY_AND_COMPANY-IT201107004968

PATIENT
  Sex: Male

DRUGS (3)
  1. DEPAKENE [Concomitant]
     Dosage: 500 MG, UNK
     Route: 048
     Dates: start: 20060101
  2. TEGRETOL [Concomitant]
     Dosage: 400 MG, UNK
     Route: 048
     Dates: start: 20060101
  3. ZYPREXA [Suspect]
     Indication: PSYCHOTIC DISORDER
     Dosage: 10 MG, QD
     Route: 048
     Dates: start: 20081003, end: 20110713

REACTIONS (1)
  - DEEP VEIN THROMBOSIS [None]
